FAERS Safety Report 10144514 (Version 1)
Quarter: 2014Q2

REPORT INFORMATION
  Report Type: Spontaneous
  Country: US (occurrence: US)
  Receive Date: 20140430
  Receipt Date: 20140430
  Transmission Date: 20141212
  Serious: No
  Sender: FDA-Public Use
  Company Number: US-SA-2014SA029215

PATIENT
  Age: 84 Year
  Sex: Female

DRUGS (1)
  1. ENOXAPARIN SODIUM - WINTHROP [Suspect]
     Indication: MYOCARDIAL BRIDGING
     Dosage: DOSE: 2 INJECTIONS ON 3/4/14 AND ONE INJECTION ON 3/5/14
     Route: 065
     Dates: start: 20140304, end: 20140305

REACTIONS (2)
  - Injection site pain [Recovered/Resolved]
  - Product packaging issue [Unknown]
